FAERS Safety Report 6312991-2 (Version None)
Quarter: 2009Q3

REPORT INFORMATION
  Report Type: 
  Country: None (occurrence: None)
  Receive Date: 20090818
  Receipt Date: 20090811
  Transmission Date: 20100115
  Serious: Yes (Death, Other)
  Sender: FDA-Public Use
  Company Number: BE-BAYER-200927833GPV

PATIENT
  Age: 81 Year
  Sex: Female

DRUGS (2)
  1. AVELOX [Suspect]
     Indication: BRONCHITIS
     Dosage: 3 OR 4 DAYS OF TREATMENT
     Route: 048
     Dates: start: 20090101, end: 20090101
  2. MAREVAN [Interacting]
     Indication: PULMONARY EMBOLISM
     Dates: start: 20090201, end: 20090402

REACTIONS (2)
  - ACTIVATED PARTIAL THROMBOPLASTIN TIME PROLONGED [None]
  - MYOCARDIAL INFARCTION [None]
